FAERS Safety Report 14139969 (Version 2)
Quarter: 2017Q4

REPORT INFORMATION
  Report Type: Spontaneous
  Country: US (occurrence: US)
  Receive Date: 20171030
  Receipt Date: 20171108
  Transmission Date: 20180321
  Serious: No
  Sender: FDA-Public Use
  Company Number: US-B.I. PHARMACEUTICALS,INC./RIDGEFIELD-2017-BI-057408

PATIENT
  Sex: Female

DRUGS (5)
  1. SPIRIVA [Suspect]
     Active Substance: TIOTROPIUM BROMIDE MONOHYDRATE
     Indication: CHRONIC OBSTRUCTIVE PULMONARY DISEASE
     Dosage: FORM STRENGTH: 18 MCG;? ADMINISTRATION CORRECT? YES ?ACTION(S) TAKEN WITH PRODUCT: DOSE NOT CHANGED
     Route: 055
  2. VERAPAMIL [Concomitant]
     Active Substance: VERAPAMIL HYDROCHLORIDE
     Indication: HYPERTENSION
     Dosage: ONE TABLET DAILY;
     Route: 065
  3. WARFRAIN [Concomitant]
     Dosage: ONE TABLET THREE DAILY FOUR TIMES A WEEK;  FORM STRENGTH: 7.5 MG; FORMULATION: TABLET
     Route: 048
  4. WARFRAIN [Concomitant]
     Indication: ATRIAL FIBRILLATION
     Dosage: ONE TABLET FOUR DAILY FOUR TIMES A WEEK;  FORM STRENGTH: 5  MG; FORMULATION: TABLET
     Route: 048
  5. ATORVASTATIN [Concomitant]
     Active Substance: ATORVASTATIN
     Indication: BLOOD CHOLESTEROL INCREASED
     Dosage: ONE TABLET DAILY;  FORM STRENGTH: 10 MG; FORMULATION: TABLET
     Route: 048

REACTIONS (4)
  - Seasonal allergy [Not Recovered/Not Resolved]
  - Cataract [Recovered/Resolved]
  - Product physical issue [Unknown]
  - Chronic obstructive pulmonary disease [Not Recovered/Not Resolved]

NARRATIVE: CASE EVENT DATE: 2010
